FAERS Safety Report 22660730 (Version 1)
Quarter: 2023Q2

REPORT INFORMATION
  Report Type: Report from Study
  Country: AT (occurrence: AT)
  Receive Date: 20230630
  Receipt Date: 20230630
  Transmission Date: 20230721
  Serious: Yes (Disabling, Other)
  Sender: FDA-Public Use
  Company Number: AT-JAZZ-2023-AT-000599

PATIENT
  Sex: Female

DRUGS (1)
  1. EPIDIOLEX [Suspect]
     Active Substance: CANNABIDIOL
     Indication: Lennox-Gastaut syndrome
     Dosage: UNK

REACTIONS (3)
  - Disability [Unknown]
  - Feeling abnormal [Not Recovered/Not Resolved]
  - Drug level increased [Not Recovered/Not Resolved]
